FAERS Safety Report 8487396-9 (Version None)
Quarter: 2012Q3

REPORT INFORMATION
  Report Type: 
  Country: None (occurrence: None)
  Receive Date: 20120705
  Receipt Date: 20120625
  Transmission Date: 20120928
  Serious: Yes (Other)
  Sender: FDA-Public Use
  Company Number: PT-VERTEX PHARMACEUTICALS INC.-000000000000000889

PATIENT
  Sex: Male
  Weight: 58.3 kg

DRUGS (4)
  1. RIBAVIRIN [Concomitant]
     Indication: HEPATITIS C
     Dates: start: 20120605, end: 20120608
  2. PEGINTERFERON ALFA-2A [Concomitant]
     Indication: HEPATITIS C
     Dates: start: 20120605, end: 20120608
  3. INCIVO [Suspect]
     Indication: HEPATITIS C
     Dosage: DOSAGE FORM: TABLET
     Dates: start: 20120605, end: 20120608
  4. EFAVIRENZ [Concomitant]
     Indication: HIV INFECTION

REACTIONS (3)
  - ALANINE AMINOTRANSFERASE INCREASED [None]
  - RASH [None]
  - OFF LABEL USE [None]
